FAERS Safety Report 13187650 (Version 1)
Quarter: 2017Q1

REPORT INFORMATION
  Report Type: Report from Study
  Country: US (occurrence: US)
  Receive Date: 20170206
  Receipt Date: 20170206
  Transmission Date: 20170428
  Serious: Yes (Hospitalization)
  Sender: FDA-Public Use
  Company Number: US-ROCHE-1888418

PATIENT
  Sex: Female
  Weight: 68.1 kg

DRUGS (3)
  1. LUCENTIS [Suspect]
     Active Substance: RANIBIZUMAB
     Indication: DIABETIC RETINOPATHY
     Dosage: EVERY 4 TO 6 WEEKS IN BOTH EYES. ;ONGOING: YES
     Route: 065
  2. LUCENTIS [Suspect]
     Active Substance: RANIBIZUMAB
     Indication: MACULAR OEDEMA
  3. INSULIN [Concomitant]
     Active Substance: INSULIN NOS
     Indication: DIABETES MELLITUS
     Dosage: ONGOING: YES
     Route: 065

REACTIONS (3)
  - Memory impairment [Unknown]
  - Systemic infection [Recovered/Resolved]
  - Vascular access site infection [Recovered/Resolved]
